FAERS Safety Report 7463396-2 (Version None)
Quarter: 2011Q2

REPORT INFORMATION
  Report Type: 
  Country: None (occurrence: None)
  Receive Date: 20110506
  Receipt Date: 20110428
  Transmission Date: 20111010
  Serious: Yes (Other)
  Sender: FDA-Public Use
  Company Number: A0924930A

PATIENT
  Sex: Male

DRUGS (2)
  1. ARIXTRA [Suspect]
     Route: 065
  2. PAIN MEDICATION [Concomitant]

REACTIONS (2)
  - HALLUCINATION, VISUAL [None]
  - INSOMNIA [None]
